FAERS Safety Report 25981770 (Version 1)
Quarter: 2025Q4

REPORT INFORMATION
  Report Type: Spontaneous
  Country: CN (occurrence: CN)
  Receive Date: 20251031
  Receipt Date: 20251031
  Transmission Date: 20260118
  Serious: Yes (Other)
  Sender: JOHNSON AND JOHNSON
  Company Number: CN-JNJFOC-20251031074

PATIENT

DRUGS (1)
  1. RYBREVANT [Suspect]
     Active Substance: AMIVANTAMAB-VMJW
     Indication: Non-small cell lung cancer
     Route: 065

REACTIONS (6)
  - Metastasis [Unknown]
  - General physical health deterioration [Unknown]
  - Underweight [Unknown]
  - Asthenia [Unknown]
  - Chest discomfort [Unknown]
  - Adverse event [Unknown]
